FAERS Safety Report 9270317 (Version 5)
Quarter: 2013Q3

REPORT INFORMATION
  Report Type: Spontaneous
  Country: US (occurrence: US)
  Receive Date: 20130503
  Receipt Date: 20130703
  Transmission Date: 20140515
  Serious: Yes (Death, Life-Threatening, Hospitalization, Disabling)
  Sender: FDA-Public Use
  Company Number: US-JNJFOC-20130416444

PATIENT
  Age: 88 Year
  Sex: Female

DRUGS (18)
  1. XARELTO [Suspect]
     Indication: CEREBROVASCULAR ACCIDENT PROPHYLAXIS
     Route: 048
     Dates: start: 20130117, end: 20130315
  2. XARELTO [Suspect]
     Indication: ATRIAL FIBRILLATION
     Route: 048
     Dates: start: 20130117, end: 20130315
  3. PLAVIX [Suspect]
     Indication: ATRIAL FIBRILLATION
     Dosage: FOR TWO YEARS
     Route: 048
     Dates: end: 20130124
  4. LOSARTAN [Concomitant]
     Indication: HYPERTENSION
     Route: 065
     Dates: start: 20050808, end: 20130424
  5. METOPROLOL [Concomitant]
     Indication: ARRHYTHMIA PROPHYLAXIS
     Route: 065
     Dates: start: 2005, end: 2013
  6. METOPROLOL [Concomitant]
     Indication: BLOOD PRESSURE
     Route: 065
     Dates: start: 2005, end: 2013
  7. ACETYLSALICYLIC ACID [Concomitant]
     Indication: CORONARY ARTERY DISEASE
     Route: 065
     Dates: start: 20031118, end: 20130424
  8. ACETYLSALICYLIC ACID [Concomitant]
     Indication: PERIPHERAL VASCULAR DISORDER
     Route: 065
     Dates: start: 20031118, end: 20130424
  9. DILTIAZEM [Concomitant]
     Indication: ARRHYTHMIA PROPHYLAXIS
     Route: 065
     Dates: start: 20121219, end: 20130424
  10. DILTIAZEM [Concomitant]
     Indication: ATRIAL FIBRILLATION
     Route: 065
     Dates: start: 20121219, end: 20130424
  11. TOPROL XL [Concomitant]
     Indication: ATRIAL FIBRILLATION
     Route: 065
     Dates: start: 20071113, end: 20130424
  12. TOPROL XL [Concomitant]
     Indication: HYPERTENSION
     Route: 065
     Dates: start: 20071113, end: 20130424
  13. LEXAPRO [Concomitant]
     Indication: ANXIETY
     Route: 065
     Dates: start: 20070727, end: 20130424
  14. XANAX [Concomitant]
     Dosage: THRICE A DAY AS NEEDED
     Route: 048
  15. LIPITOR [Concomitant]
     Indication: HYPERLIPIDAEMIA
     Route: 048
  16. HYDROCORTISONE [Concomitant]
     Indication: DERMATITIS
     Dosage: TWICE A DAY AS NEEDED
     Route: 061
  17. LORATADINE [Concomitant]
     Route: 065
  18. LOSARTAN [Concomitant]
     Route: 065

REACTIONS (8)
  - Embolic stroke [Recovering/Resolving]
  - Cerebral infarction [Recovering/Resolving]
  - Gastrointestinal haemorrhage [Recovering/Resolving]
  - Anaemia [Recovering/Resolving]
  - Sepsis [Fatal]
  - Pneumonia [Fatal]
  - Treatment noncompliance [Unknown]
  - Obstructive airways disorder [Unknown]
